FAERS Safety Report 7451521-9 (Version None)
Quarter: 2011Q2

REPORT INFORMATION
  Report Type: 
  Country: None (occurrence: None)
  Receive Date: 20110502
  Receipt Date: 20110421
  Transmission Date: 20111010
  Serious: Yes (Other)
  Sender: FDA-Public Use
  Company Number: PHHY2011US33730

PATIENT
  Sex: Female

DRUGS (9)
  1. GILENYA [Suspect]
     Dosage: 0.5 MG, QD
     Route: 048
     Dates: start: 20110411
  2. ALPRAZOLAM [Concomitant]
     Indication: ANXIETY
     Dosage: 0.25 MG, 1.5 DF QD
  3. SIMVASTATIN [Concomitant]
     Indication: BLOOD CHOLESTEROL INCREASED
     Dosage: UNK, QD
  4. EVISTA [Concomitant]
     Indication: HORMONE REPLACEMENT THERAPY
     Dosage: UNK, QD
  5. GILENYA [Suspect]
     Indication: MULTIPLE SCLEROSIS
     Dosage: 0.5 MG, QD
     Route: 048
     Dates: start: 20110328, end: 20110406
  6. TRAZODONE [Concomitant]
     Dosage: UNK
  7. VITAMIN D [Concomitant]
     Dosage: UNK
  8. PROVIGIL [Concomitant]
     Indication: FATIGUE
     Dosage: 1-2 DF, DAILY
  9. AMANTADINE HCL [Concomitant]
     Indication: FATIGUE
     Dosage: 100 MG, QD

REACTIONS (4)
  - ABDOMINAL DISTENSION [None]
  - LOSS OF CONSCIOUSNESS [None]
  - DECREASED APPETITE [None]
  - CONSTIPATION [None]
